FAERS Safety Report 17266191 (Version 4)
Quarter: 2020Q1

REPORT INFORMATION
  Report Type: Report from Study
  Country: GR (occurrence: GR)
  Receive Date: 20200114
  Receipt Date: 20200313
  Transmission Date: 20200409
  Serious: Yes (Hospitalization)
  Sender: FDA-Public Use
  Company Number: GR-ROCHE-2518881

PATIENT
  Age: 78 Year
  Sex: Male
  Weight: 108 kg

DRUGS (4)
  1. VEMURAFENIB. [Suspect]
     Active Substance: VEMURAFENIB
     Indication: MALIGNANT MELANOMA
     Dosage: LAST DOSE OF VEMURAFENIB PRIOR TO SERIOUS ADVERSE EVENT: 12/JUN/2019
     Route: 048
     Dates: start: 20190316, end: 20190621
  2. COBIMETINIB. [Suspect]
     Active Substance: COBIMETINIB
     Dosage: LAST DOSE OF COBIMETINIB PRIOR TO SERIOUS ADVERSE EVENT: 19/DEC/2019
     Route: 048
  3. VEMURAFENIB. [Suspect]
     Active Substance: VEMURAFENIB
     Dosage: LAST DOSE OF VEMURAFENIB PRIOR TO SERIOUS ADVERSE EVENT: 19/DEC/2019
     Route: 048
     Dates: start: 20191206, end: 20191220
  4. COBIMETINIB. [Suspect]
     Active Substance: COBIMETINIB
     Indication: MALIGNANT MELANOMA
     Dosage: LAST DOSE OF COBIMETINIB PRIOR TO SERIOUS ADVERSE EVENT: 12/JUN/2019
     Route: 048

REACTIONS (2)
  - Ejection fraction decreased [Not Recovered/Not Resolved]
  - Retinopathy [Recovered/Resolved]

NARRATIVE: CASE EVENT DATE: 20190613
